FAERS Safety Report 18823063 (Version 3)
Quarter: 2021Q1

REPORT INFORMATION
  Report Type: Report from Study
  Country: DE (occurrence: DE)
  Receive Date: 20210202
  Receipt Date: 20210210
  Transmission Date: 20210419
  Serious: Yes (Hospitalization)
  Sender: FDA-Public Use
  Company Number: DE-OTSUKA-2021_001427

PATIENT
  Age: 74 Year
  Sex: Male
  Weight: 80.9 kg

DRUGS (22)
  1. COTRIMOXAZOL [Concomitant]
     Active Substance: SULFAMETHOXAZOLE\TRIMETHOPRIM
     Indication: INFECTION
  2. CALCIUM [Concomitant]
     Active Substance: CALCIUM
     Dosage: UNK
     Route: 048
     Dates: start: 20210130
  3. POTASSIUM [Concomitant]
     Active Substance: POTASSIUM
     Dosage: UNK
     Route: 048
     Dates: start: 20210130
  4. LERCANIDIPIN ACTAVIS [Concomitant]
     Active Substance: LERCANIDIPINE
     Indication: HYPERTENSION
     Dosage: 20 MG, BID
     Route: 048
     Dates: start: 20171015, end: 20210124
  5. ASTX727 [Suspect]
     Active Substance: CEDAZURIDINE\DECITABINE
     Indication: ACUTE MYELOID LEUKAEMIA
     Dosage: 135 MG (100 MG OF CEDAZURIDINE AND 35 MG OF DECITABINE), QD FOR 5 DAYS OF A 28 DAYS CYCLE
     Route: 048
     Dates: start: 20210111
  6. ACICLOVIR [Concomitant]
     Active Substance: ACYCLOVIR
     Indication: PROPHYLAXIS
     Dosage: 400 MG, BID
     Route: 048
     Dates: start: 20201231
  7. FOLIC ACID. [Concomitant]
     Active Substance: FOLIC ACID
     Indication: FOLATE DEFICIENCY
     Dosage: 5 MG, QD
     Route: 048
     Dates: start: 20171015
  8. DEXPANTHENOL. [Concomitant]
     Active Substance: DEXPANTHENOL
     Indication: PROPHYLAXIS
     Dosage: UNK
     Route: 048
     Dates: start: 20201231
  9. LERCANIDIPIN ACTAVIS [Concomitant]
     Active Substance: LERCANIDIPINE
     Dosage: UNK
     Route: 048
     Dates: start: 20210130
  10. GRANISETRON [Concomitant]
     Active Substance: GRANISETRON
     Indication: PROPHYLAXIS OF NAUSEA AND VOMITING
     Dosage: UNK
     Route: 048
     Dates: start: 20210111, end: 20210124
  11. JONOSTERIL [Concomitant]
     Indication: PROPHYLAXIS
     Dosage: UNK
     Route: 042
     Dates: start: 20201213, end: 20210116
  12. CANDESARTAN. [Concomitant]
     Active Substance: CANDESARTAN
     Indication: HYPERTENSION
     Dosage: 16 MG, BID
     Route: 048
     Dates: start: 20171015
  13. DEXPANTHENOL. [Concomitant]
     Active Substance: DEXPANTHENOL
     Indication: MUCOSAL INFLAMMATION
  14. COTRIMOXAZOL [Concomitant]
     Active Substance: SULFAMETHOXAZOLE\TRIMETHOPRIM
     Indication: PROPHYLAXIS
     Dosage: 960 MG, BID
     Route: 048
     Dates: start: 20210104
  15. CALCIUM [Concomitant]
     Active Substance: CALCIUM
     Indication: HYPOCALCAEMIA
     Dosage: UNK (ONCE DAILY)
     Route: 048
     Dates: start: 20210113, end: 20210124
  16. JONOSTERIL [Concomitant]
     Dosage: UNK
     Route: 042
     Dates: start: 20210118, end: 20210130
  17. AMPHO?MORONAL [Concomitant]
     Active Substance: AMPHOTERICIN B
     Indication: PROPHYLAXIS
     Dosage: QID
     Route: 048
     Dates: start: 20201231
  18. POTASSIUM [Concomitant]
     Active Substance: POTASSIUM
     Indication: PROPHYLAXIS
     Dosage: UNK (ONCE A DAY)
     Route: 048
     Dates: start: 20210112, end: 20210124
  19. AMOXICILLIN CLAVULANIC ACID [Concomitant]
     Active Substance: AMOXICILLIN\CLAVULANIC ACID
     Indication: HAEMATOMA INFECTION
  20. JONOSTERIL [Concomitant]
     Indication: PROPHYLAXIS AGAINST DEHYDRATION
     Dosage: UNK
     Route: 042
     Dates: start: 20201231, end: 20210105
  21. POSACONAZOL [Concomitant]
     Active Substance: POSACONAZOLE
     Indication: PROPHYLAXIS
     Dosage: UNK
     Route: 048
     Dates: start: 20201231, end: 20210111
  22. AMOXICILLIN CLAVULANIC ACID [Concomitant]
     Active Substance: AMOXICILLIN\CLAVULANIC ACID
     Indication: C-REACTIVE PROTEIN INCREASED
     Dosage: UNK
     Route: 048
     Dates: start: 20210115, end: 20210122

REACTIONS (1)
  - Polyserositis [Recovered/Resolved with Sequelae]

NARRATIVE: CASE EVENT DATE: 20210118
